FAERS Safety Report 8507796-8 (Version None)
Quarter: 2012Q3

REPORT INFORMATION
  Report Type: 
  Country: None (occurrence: None)
  Receive Date: 20120713
  Receipt Date: 20120704
  Transmission Date: 20120928
  Serious: Yes (Hospitalization, Other)
  Sender: FDA-Public Use
  Company Number: PHHY2012FR058060

PATIENT
  Sex: Female

DRUGS (44)
  1. ASPEGIC 1000 [Concomitant]
     Indication: ISCHAEMIC STROKE
     Dosage: 250 MG, DAILY
  2. BACTRIM DS [Concomitant]
     Dosage: 1 DF, 3 TIMES EVERY WEEKS
  3. TAZOBACTAM [Concomitant]
     Dosage: 4 G, TID
     Dates: start: 20120523, end: 20120528
  4. IMIPENEM AND CILASTATIN SODIUM [Concomitant]
  5. FLUCONAZOLE [Concomitant]
     Dosage: 200 MG, BID
  6. AMIKACIN [Concomitant]
     Dosage: 750 MG, DAILY
     Dates: start: 20120523
  7. VINCRISTINE [Concomitant]
     Dosage: 1.5 MG, UNK
     Dates: start: 20120517
  8. VIBRAMYCIN D [Concomitant]
     Dosage: 200 MG, DAILY
     Dates: end: 20120522
  9. ASPEGIC 1000 [Concomitant]
     Dosage: 100 MG, DAILY
  10. FOSPHENYTOIN SODIUM [Concomitant]
  11. KEPPRA [Concomitant]
  12. IMATINIB MESYLATE [Suspect]
     Indication: ACUTE LYMPHOCYTIC LEUKAEMIA
     Dosage: 400 MG, DAILY
     Route: 048
     Dates: start: 20120510, end: 20120526
  13. DEPOCYT [Suspect]
     Dosage: 40 MG, UNK
     Dates: start: 20120524
  14. VINCRISTINE [Concomitant]
     Dosage: 1.5 MG, UNK
     Dates: start: 20120510
  15. GENTAMICIN [Concomitant]
     Dates: end: 20120509
  16. CYCLOPHOSPHAMIDE [Concomitant]
     Dosage: 1.2 G, UNK
     Dates: start: 20120517
  17. MESNA [Concomitant]
     Dosage: 400 MG, UNK
  18. COLIMYCINE [Concomitant]
     Dates: end: 20120528
  19. PYOSTACINE [Concomitant]
     Dosage: 6 DF, DAILY
     Dates: start: 20120529
  20. DEPAKENE [Concomitant]
  21. IRADUBICIN [Concomitant]
     Dosage: 13 MG, UNK
  22. IRADUBICIN [Concomitant]
     Dosage: 13 MG, UNK
     Dates: start: 20120512
  23. DEPOCYT [Suspect]
     Dosage: 40 MG, UNK
     Dates: start: 20120517
  24. FLUCONAZOLE [Concomitant]
     Dosage: 200 MG, BID
     Route: 042
     Dates: start: 20120531
  25. METHOTREXATE [Suspect]
     Dosage: 15 MG, UNK
     Dates: start: 20120517
  26. DEPOCYT [Suspect]
     Indication: ACUTE LYMPHOCYTIC LEUKAEMIA
     Dosage: 40 MG, UNK
     Route: 037
     Dates: start: 20120507
  27. VINCRISTINE [Concomitant]
     Dosage: 1.5 MG, UNK
     Dates: start: 20120524
  28. METHYLPREDNISOLONE [Concomitant]
     Dosage: 80 MG, DAILY
     Dates: end: 20120520
  29. CIPROFLOXACIN HYDROCHLORIDE [Concomitant]
     Dates: end: 20120522
  30. VANCOMYCIN [Concomitant]
     Dosage: 2.5 G, DAILY
     Dates: end: 20120522
  31. MESNA [Concomitant]
     Dosage: 600 MG, UNK
  32. VFEND [Concomitant]
     Dates: end: 20120531
  33. IRADUBICIN [Concomitant]
     Dosage: 13 MG, UNK
     Dates: start: 20120511
  34. METHOTREXATE [Suspect]
     Indication: ACUTE LYMPHOCYTIC LEUKAEMIA
     Dosage: 15 MG, UNK
     Route: 037
     Dates: start: 20120507
  35. METHOTREXATE [Suspect]
     Dosage: 15 MG, UNK
     Dates: start: 20120524
  36. ROCEPHIN [Concomitant]
     Dosage: 2 G, UNK
     Route: 042
     Dates: end: 20120522
  37. HEPARIN SODIUM [Concomitant]
     Dates: end: 20120527
  38. FLAGYL [Concomitant]
     Dates: end: 20120528
  39. AMPHOTERICIN B [Concomitant]
     Dosage: 75 MG, DAILY
     Route: 017
     Dates: end: 20120527
  40. ZYVOX [Concomitant]
     Dosage: 600 MG, BID
     Dates: end: 20120528
  41. CLONAZEPAM [Concomitant]
  42. IRADUBICIN [Concomitant]
     Dosage: 1.3 MG, UNK
     Dates: start: 20120517
  43. VALACYCLOVIR HYDROCHLORIDE [Concomitant]
  44. CYCLOPHOSPHAMIDE [Concomitant]
     Dosage: 1.2 G, UNK
     Dates: start: 20120510

REACTIONS (10)
  - POSTERIOR REVERSIBLE ENCEPHALOPATHY SYNDROME [None]
  - APLASIA [None]
  - SEPSIS [None]
  - COMA [None]
  - STATUS EPILEPTICUS [None]
  - CONVULSION [None]
  - ISCHAEMIC STROKE [None]
  - SUBARACHNOID HAEMORRHAGE [None]
  - OEDEMA [None]
  - CANDIDIASIS [None]
